FAERS Safety Report 14061611 (Version 1)
Quarter: 2017Q4

REPORT INFORMATION
  Report Type: Spontaneous
  Country: AU (occurrence: AU)
  Receive Date: 20171009
  Receipt Date: 20171009
  Transmission Date: 20180321
  Serious: Yes (Other)
  Sender: FDA-Public Use
  Company Number: AU-CONCORDIA PHARMACEUTICALS INC.-GSH201710-005697

PATIENT
  Age: 80 Year
  Sex: Male

DRUGS (8)
  1. ATENOLOL. [Concomitant]
     Active Substance: ATENOLOL
  2. ASPIRIN. [Concomitant]
     Active Substance: ASPIRIN
  3. FOLIC ACID. [Concomitant]
     Active Substance: FOLIC ACID
  4. RAMIPRIL. [Concomitant]
     Active Substance: RAMIPRIL
  5. HYDROXYCHLOROQUINE [Suspect]
     Active Substance: HYDROXYCHLOROQUINE
     Indication: RHEUMATOID ARTHRITIS
     Route: 065
  6. PREDNISONE. [Suspect]
     Active Substance: PREDNISONE
     Indication: RHEUMATOID ARTHRITIS
     Route: 065
  7. METHOTREXATE. [Suspect]
     Active Substance: METHOTREXATE
     Indication: RHEUMATOID ARTHRITIS
     Route: 065
  8. PRAZOSIN. [Concomitant]
     Active Substance: PRAZOSIN

REACTIONS (4)
  - Skin odour abnormal [Recovered/Resolved]
  - Angiocentric lymphoma [Recovered/Resolved]
  - Skin lesion [Recovered/Resolved]
  - Pain of skin [Recovered/Resolved]
